FAERS Safety Report 17328019 (Version 4)
Quarter: 2020Q1

REPORT INFORMATION
  Report Type: Spontaneous
  Country: US (occurrence: US)
  Receive Date: 20200127
  Receipt Date: 20200218
  Transmission Date: 20200409
  Serious: No
  Sender: FDA-Public Use
  Company Number: US-PFIZER INC-2020035736

PATIENT
  Age: 67 Year
  Sex: Male
  Weight: 106 kg

DRUGS (3)
  1. RAPAMUNE [Suspect]
     Active Substance: SIROLIMUS
     Dosage: 0.5 MG, ALTERNATE DAY[DECREASED TO EVERY OTHER DAY]
     Route: 048
  2. RAPAMUNE [Suspect]
     Active Substance: SIROLIMUS
     Indication: HEART TRANSPLANT
     Dosage: 0.5 MG, 1X/DAY (0.5MG ONCE A DAY BY MOUTH)
     Route: 048
     Dates: start: 2019
  3. RAPAMUNE [Suspect]
     Active Substance: SIROLIMUS
     Dosage: 0.5 MG, 1X/DAY (0.5MG ONCE A DAY BY MOUTH)
     Route: 048

REACTIONS (8)
  - Visual impairment [Unknown]
  - Diarrhoea [Unknown]
  - Off label use [Unknown]
  - Product dispensing error [Unknown]
  - Acne [Recovering/Resolving]
  - Back pain [Unknown]
  - Infection [Unknown]
  - Product use in unapproved indication [Unknown]

NARRATIVE: CASE EVENT DATE: 2019
